FAERS Safety Report 7472520-7 (Version None)
Quarter: 2011Q2

REPORT INFORMATION
  Report Type: 
  Country: None (occurrence: None)
  Receive Date: 20110511
  Receipt Date: 20110502
  Transmission Date: 20111010
  Serious: Yes (Hospitalization)
  Sender: FDA-Public Use
  Company Number: US-NOVOPROD-327486

PATIENT
  Age: 62 Year
  Sex: Male
  Weight: 97.959 kg

DRUGS (4)
  1. VICTOZA [Suspect]
     Dosage: 1.2 MG, QD
     Route: 058
     Dates: start: 20110404, end: 20110410
  2. LISINOPRIL [Concomitant]
     Indication: DIABETES PROPHYLAXIS
  3. VICTOZA [Suspect]
     Indication: TYPE 2 DIABETES MELLITUS
     Dosage: 0.6 MG, QD
     Route: 058
     Dates: start: 20110328, end: 20110101
  4. LISINOPRIL [Concomitant]
     Indication: HYPERTENSION
     Dosage: UNK

REACTIONS (2)
  - INTESTINAL OBSTRUCTION [None]
  - CONSTIPATION [None]
